FAERS Safety Report 5467769-9 (Version None)
Quarter: 2007Q3

REPORT INFORMATION
  Report Type: 
  Country: None (occurrence: None)
  Receive Date: 20070926
  Receipt Date: 20070919
  Transmission Date: 20080115
  Serious: Yes (Hospitalization)
  Sender: FDA-Public Use
  Company Number: PHEH2007US11921

PATIENT
  Age: 80 Year
  Sex: Male

DRUGS (7)
  1. EXJADE [Suspect]
     Dosage: 500 MG, BID
     Route: 048
     Dates: start: 20070522, end: 20070717
  2. ASPIRIN [Concomitant]
     Dosage: 81 MG, QD
     Route: 048
  3. COREG [Concomitant]
     Dosage: 12.5 MG, BID
     Route: 048
  4. FOLIC ACID [Concomitant]
     Dosage: 1 MG, QD
     Route: 048
  5. LASIX [Concomitant]
     Dosage: 40 MG, QD
     Route: 048
  6. NEXIUM [Concomitant]
     Dosage: 40 MG, QD
     Route: 048
  7. KLOR-CON [Concomitant]
     Dosage: 10 MEQ QD
     Route: 048

REACTIONS (9)
  - ASTHENIA [None]
  - BLOOD CALCIUM DECREASED [None]
  - BLOOD CREATININE INCREASED [None]
  - BLOOD SODIUM DECREASED [None]
  - CLOSTRIDIAL INFECTION [None]
  - DEHYDRATION [None]
  - DIARRHOEA [None]
  - HAEMOGLOBIN DECREASED [None]
  - PNEUMONIA [None]
